FAERS Safety Report 19893496 (Version 1)
Quarter: 2021Q3

REPORT INFORMATION
  Report Type: Spontaneous
  Country: GB (occurrence: GB)
  Receive Date: 20210928
  Receipt Date: 20210928
  Transmission Date: 20211014
  Serious: Yes (Hospitalization)
  Sender: FDA-Public Use
  Company Number: GB-SA-2021SA298601

PATIENT
  Age: 65 Year
  Sex: Male

DRUGS (1)
  1. KEVZARA [Suspect]
     Active Substance: SARILUMAB
     Indication: VASCULITIS
     Dosage: 200 MG
     Route: 058
     Dates: start: 202107

REACTIONS (4)
  - Nausea [Unknown]
  - Off label use [Unknown]
  - Dizziness [Unknown]
  - Hypertension [Unknown]

NARRATIVE: CASE EVENT DATE: 202107
